FAERS Safety Report 18101521 (Version 1)
Quarter: 2020Q3

REPORT INFORMATION
  Report Type: Spontaneous
  Country: US (occurrence: US)
  Receive Date: 20200801
  Receipt Date: 20200801
  Transmission Date: 20201103
  Serious: No
  Sender: FDA-Public Use
  Company Number: US-TEVA-2020-US-1808550

PATIENT
  Sex: Male

DRUGS (1)
  1. PROAIR HFA [Suspect]
     Active Substance: ALBUTEROL SULFATE
     Indication: ASTHMA
     Dosage: INHALATION AEROSOL

REACTIONS (4)
  - Device occlusion [Unknown]
  - Respiration abnormal [Unknown]
  - Wrong technique in product usage process [Unknown]
  - Product storage error [Unknown]
